FAERS Safety Report 10110073 (Version 1)
Quarter: 2014Q2

REPORT INFORMATION
  Report Type: Spontaneous
  Country: US (occurrence: US)
  Receive Date: 20140425
  Receipt Date: 20140425
  Transmission Date: 20141212
  Serious: No
  Sender: FDA-Public Use
  Company Number: US-BAYER-2014-060620

PATIENT
  Age: 84 Year
  Sex: Female
  Weight: 61.68 kg

DRUGS (4)
  1. ALEVE LIQUID GELS [Suspect]
     Indication: MYALGIA
     Dosage: 1 DF, ONCE
     Dates: start: 20140421, end: 20140421
  2. VITAMIN B12 [CYANOCOBALAMIN] [Concomitant]
  3. VITAMIN D3 [Concomitant]
  4. CENTRUM SILVER [Concomitant]

REACTIONS (1)
  - Foreign body [Recovered/Resolved]
